FAERS Safety Report 20185539 (Version 3)
Quarter: 2022Q1

REPORT INFORMATION
  Report Type: Report from Study
  Country: US (occurrence: US)
  Receive Date: 20211215
  Receipt Date: 20220113
  Transmission Date: 20220424
  Serious: No
  Sender: FDA-Public Use
  Company Number: US-NOVARTISTESTPH-NVSC2021US286009

PATIENT
  Sex: Male

DRUGS (1)
  1. ENTRESTO [Suspect]
     Active Substance: SACUBITRIL\VALSARTAN
     Indication: Product used for unknown indication
     Dosage: UNK, BID (24/26 MG)
     Route: 048
     Dates: start: 20211104

REACTIONS (3)
  - Blood glucose increased [Unknown]
  - COVID-19 [Recovering/Resolving]
  - Cough [Unknown]
